FAERS Safety Report 14553857 (Version 1)
Quarter: 2018Q1

REPORT INFORMATION
  Report Type: Spontaneous
  Country: US (occurrence: US)
  Receive Date: 20180220
  Receipt Date: 20180220
  Transmission Date: 20180509
  Serious: No
  Sender: FDA-Public Use
  Company Number: US-BAYER-2018-029232

PATIENT
  Age: 72 Year
  Sex: Female
  Weight: 64.4 kg

DRUGS (2)
  1. MIRALAX [Suspect]
     Active Substance: POLYETHYLENE GLYCOL 3350
     Indication: BOWEL MOVEMENT IRREGULARITY
     Dosage: UNK
     Route: 048
     Dates: start: 201709
  2. PHILLIPS^ COLON HEALTH [Suspect]
     Active Substance: PROBIOTICS NOS
     Indication: DYSPEPSIA
     Dosage: 1 DF, WITH FOOD
     Route: 048
     Dates: start: 2015

REACTIONS (5)
  - Product prescribing issue [Unknown]
  - Drug ineffective [Unknown]
  - Flatulence [Recovering/Resolving]
  - Incorrect dose administered [Unknown]
  - Product use issue [Unknown]

NARRATIVE: CASE EVENT DATE: 201709
